FAERS Safety Report 22324848 (Version 1)
Quarter: 2023Q2

REPORT INFORMATION
  Report Type: Spontaneous
  Country: IT (occurrence: IT)
  Receive Date: 20230516
  Receipt Date: 20230516
  Transmission Date: 20230722
  Serious: Yes (Other)
  Sender: FDA-Public Use
  Company Number: IT-PFIZER INC-PV202300084682

PATIENT
  Sex: Female

DRUGS (1)
  1. BOSUTINIB [Suspect]
     Active Substance: BOSUTINIB
     Indication: Chronic myeloid leukaemia
     Dosage: 500 MG
     Dates: start: 201707

REACTIONS (6)
  - Mitral valve incompetence [Unknown]
  - Pulmonary arterial pressure increased [Unknown]
  - Gastrointestinal toxicity [Unknown]
  - Dyspnoea exertional [Unknown]
  - Lung disorder [Unknown]
  - Diastolic dysfunction [Unknown]

NARRATIVE: CASE EVENT DATE: 20171001
